FAERS Safety Report 18339067 (Version 1)
Quarter: 2020Q4

REPORT INFORMATION
  Report Type: Spontaneous
  Country: US (occurrence: US)
  Receive Date: 20201002
  Receipt Date: 20201002
  Transmission Date: 20210113
  Serious: Yes (Other)
  Sender: FDA-Public Use
  Company Number: None

PATIENT
  Age: 49 Year
  Sex: Male
  Weight: 63 kg

DRUGS (1)
  1. NOVOLOG [Suspect]
     Active Substance: INSULIN ASPART
     Indication: DIABETES MELLITUS
     Dosage: ?          OTHER STRENGTH:100 UNITS/ML;QUANTITY:2 VIALS;?
     Route: 058
     Dates: start: 20200919, end: 20200929

REACTIONS (3)
  - Injection site swelling [None]
  - Injection site infection [None]
  - Therapy interrupted [None]

NARRATIVE: CASE EVENT DATE: 20200927
